FAERS Safety Report 8583716-5 (Version None)
Quarter: 2012Q3

REPORT INFORMATION
  Report Type: 
  Country: None (occurrence: None)
  Receive Date: 20120809
  Receipt Date: 20120803
  Transmission Date: 20120928
  Serious: Yes (Hospitalization, Other)
  Sender: FDA-Public Use
  Company Number: US-009507513-2011SP043793

PATIENT

DRUGS (3)
  1. NUVARING [Suspect]
     Indication: DYSMENORRHOEA
     Dosage: UNK
     Route: 067
     Dates: start: 20020801, end: 20090901
  2. NUVARING [Suspect]
     Indication: PROPHYLAXIS
  3. METABOLIFE 356 [Concomitant]
     Indication: ROUTINE HEALTH MAINTENANCE
     Dosage: UNK
     Dates: start: 20030101

REACTIONS (21)
  - BREAST PAIN [None]
  - CONSTIPATION [None]
  - DEEP VEIN THROMBOSIS [None]
  - TONSILLAR DISORDER [None]
  - DEPRESSION [None]
  - PULMONARY EMBOLISM [None]
  - CERVICAL DYSPLASIA [None]
  - MUSCLE STRAIN [None]
  - NECK PAIN [None]
  - OFF LABEL USE [None]
  - OVARIAN CYST [None]
  - ROAD TRAFFIC ACCIDENT [None]
  - BACK PAIN [None]
  - ABDOMINAL PAIN [None]
  - APPENDICITIS [None]
  - BARTHOLIN'S CYST [None]
  - HAEMORRHAGIC OVARIAN CYST [None]
  - DYSFUNCTIONAL UTERINE BLEEDING [None]
  - VAGINAL DISCHARGE [None]
  - INAPPROPRIATE SCHEDULE OF DRUG ADMINISTRATION [None]
  - OVERWEIGHT [None]
